FAERS Safety Report 13815508 (Version 1)
Quarter: 2017Q3

REPORT INFORMATION
  Report Type: Spontaneous
  Country: US (occurrence: US)
  Receive Date: 20170731
  Receipt Date: 20170731
  Transmission Date: 20171127
  Serious: No
  Sender: FDA-Public Use
  Company Number: None

PATIENT
  Age: 79 Year
  Sex: Male

DRUGS (1)
  1. JAKAFI [Suspect]
     Active Substance: RUXOLITINIB

REACTIONS (4)
  - Neuropathy peripheral [None]
  - Gait disturbance [None]
  - Fatigue [None]
  - Cerebrovascular accident [None]

NARRATIVE: CASE EVENT DATE: 20170731
